FAERS Safety Report 5522897-4 (Version None)
Quarter: 2007Q4

REPORT INFORMATION
  Report Type: 
  Country: None (occurrence: None)
  Receive Date: 20071115
  Receipt Date: 20071105
  Transmission Date: 20080405
  Serious: Yes (Hospitalization)
  Sender: FDA-Public Use
  Company Number: 2007-167092-NL

PATIENT
  Age: 34 Year
  Sex: Female

DRUGS (2)
  1. FOLLITROPIN BETA [Suspect]
     Indication: INFERTILITY
     Dosage: 150 IU
     Dates: start: 20000515, end: 20000522
  2. TRIPTORELIN ACETATE [Suspect]
     Indication: INFERTILITY
     Dosage: 0.1 MG
     Dates: start: 20000501, end: 20000501

REACTIONS (4)
  - BREAST CANCER FEMALE [None]
  - FIBROADENOMA [None]
  - PAIN [None]
  - PREGNANCY [None]
